FAERS Safety Report 11420118 (Version 1)
Quarter: 2015Q3

REPORT INFORMATION
  Report Type: Spontaneous
  Country: US (occurrence: None)
  Receive Date: 20150825
  Receipt Date: 20150825
  Transmission Date: 20151125
  Serious: No
  Sender: FDA-Public Use
  Company Number: None

PATIENT
  Age: 64 Year
  Sex: Male
  Weight: 138.8 kg

DRUGS (2)
  1. ESCITALOPRAM [Suspect]
     Active Substance: ESCITALOPRAM OXALATE
     Indication: DEPRESSION
     Dosage: ONE PILL
     Route: 048
     Dates: start: 20130701, end: 20150823
  2. ESCITALOPRAM [Suspect]
     Active Substance: ESCITALOPRAM OXALATE
     Indication: POST-TRAUMATIC STRESS DISORDER
     Dosage: ONE PILL
     Route: 048
     Dates: start: 20130701, end: 20150823

REACTIONS (6)
  - Anxiety [None]
  - Polydipsia [None]
  - Hypervigilance [None]
  - Depression [None]
  - Irritability [None]
  - Product substitution issue [None]

NARRATIVE: CASE EVENT DATE: 20130815
